FAERS Safety Report 12392102 (Version 1)
Quarter: 2016Q2

REPORT INFORMATION
  Report Type: Spontaneous
  Country: US (occurrence: US)
  Receive Date: 20160523
  Receipt Date: 20160523
  Transmission Date: 20160815
  Serious: Yes (Other)
  Sender: FDA-Public Use
  Company Number: US-TEVA-642769USA

PATIENT
  Sex: Male

DRUGS (1)
  1. MYCOPHENOLATE MOFETIL. [Suspect]
     Active Substance: MYCOPHENOLATE MOFETIL
     Dates: start: 2004

REACTIONS (6)
  - Insomnia [Unknown]
  - Confusional state [Unknown]
  - Nightmare [Unknown]
  - Fatigue [Unknown]
  - Headache [Unknown]
  - Hallucination [Unknown]
